FAERS Safety Report 25360131 (Version 3)
Quarter: 2025Q2

REPORT INFORMATION
  Report Type: Spontaneous
  Country: US (occurrence: US)
  Receive Date: 20250527
  Receipt Date: 20250611
  Transmission Date: 20250717
  Serious: Yes (Hospitalization, Other)
  Sender: PROCTER AND GAMBLE
  Company Number: US-MLMSERVICE-20250512-PI495790-00118-2

PATIENT
  Age: 13 Year
  Sex: Male
  Weight: 50 kg

DRUGS (1)
  1. DEXTROMETHORPHAN [Suspect]
     Active Substance: DEXTROMETHORPHAN
     Indication: Respiratory symptom

REACTIONS (24)
  - Anaphylactic reaction [Recovered/Resolved]
  - Face oedema [Recovered/Resolved]
  - Urticaria [Recovered/Resolved]
  - Cardiac failure acute [Recovered/Resolved]
  - Myocardial injury [Recovered/Resolved]
  - Electrocardiogram ST segment elevation [Recovered/Resolved]
  - Hypoxia [Recovered/Resolved]
  - Pulmonary oedema [Recovered/Resolved]
  - Myocardial ischaemia [Recovered/Resolved]
  - Respiratory failure [Recovered/Resolved]
  - Tachypnoea [Recovered/Resolved]
  - Vomiting [Recovered/Resolved]
  - Dizziness [Recovered/Resolved]
  - Palpitations [Recovered/Resolved]
  - Chest pain [Recovered/Resolved]
  - Hypotension [Recovered/Resolved]
  - Troponin I increased [Recovered/Resolved]
  - Left ventricular dysfunction [Recovered/Resolved]
  - Left ventricular dilatation [Recovered/Resolved]
  - Ejection fraction decreased [Recovered/Resolved]
  - Right ventricular dysfunction [Recovered/Resolved]
  - Global longitudinal strain abnormal [Recovered/Resolved]
  - Ventricular hypertrophy [Recovered/Resolved]
  - Rales [Recovered/Resolved]
